FAERS Safety Report 7186855-9 (Version None)
Quarter: 2010Q4

REPORT INFORMATION
  Report Type: 
  Country: None (occurrence: None)
  Receive Date: 20101222
  Receipt Date: 20101216
  Transmission Date: 20110411
  Serious: Yes (Hospitalization)
  Sender: FDA-Public Use
  Company Number: B0689676A

PATIENT
  Sex: Female

DRUGS (5)
  1. CLAMOXYL [Suspect]
     Dosage: 1G TWICE PER DAY
     Route: 048
     Dates: start: 20100921, end: 20100926
  2. IBUPROFEN [Suspect]
     Indication: PROPHYLAXIS
     Dosage: 400MG TWICE PER DAY
     Route: 048
     Dates: start: 20100922, end: 20100922
  3. HERBAL MEDICATION + MINERAL SALT [Concomitant]
     Dosage: 3UNIT PER DAY
     Route: 065
     Dates: start: 20100501, end: 20100927
  4. HERBAL MEDICATION [Concomitant]
     Dosage: 4UNIT PER DAY
     Route: 065
     Dates: start: 20100501, end: 20100927
  5. ZOVIRAX [Concomitant]
     Route: 065
     Dates: start: 20100924

REACTIONS (8)
  - CHEILITIS [None]
  - ECZEMA [None]
  - EYELID OEDEMA [None]
  - FACE OEDEMA [None]
  - LYMPHADENOPATHY [None]
  - OEDEMA PERIPHERAL [None]
  - PRURITUS [None]
  - RASH MACULO-PAPULAR [None]
